FAERS Safety Report 13947029 (Version 1)
Quarter: 2017Q3

REPORT INFORMATION
  Report Type: Spontaneous
  Country: US (occurrence: US)
  Receive Date: 20170907
  Receipt Date: 20170907
  Transmission Date: 20171128
  Serious: Yes (Other)
  Sender: FDA-Public Use
  Company Number: US-GLAXOSMITHKLINE-US2017GSK137136

PATIENT
  Sex: Female

DRUGS (4)
  1. PLAQUENIL [Concomitant]
     Active Substance: HYDROXYCHLOROQUINE SULFATE
  2. VITAMIN B12 [Concomitant]
     Active Substance: CYANOCOBALAMIN
  3. VITAMIN D3 [Concomitant]
     Active Substance: CHOLECALCIFEROL
  4. BENLYSTA [Suspect]
     Active Substance: BELIMUMAB
     Indication: SYSTEMIC LUPUS ERYTHEMATOSUS
     Dosage: UNK
     Route: 042
     Dates: start: 20170423, end: 20170725

REACTIONS (8)
  - Systemic lupus erythematosus [Unknown]
  - Pyrexia [Unknown]
  - Systemic lupus erythematosus rash [Unknown]
  - Fatigue [Unknown]
  - Rash [Unknown]
  - Headache [Unknown]
  - Arthralgia [Unknown]
  - Asthenia [Unknown]
